FAERS Safety Report 6342332-6 (Version None)
Quarter: 2009Q3

REPORT INFORMATION
  Report Type: 
  Country: None (occurrence: None)
  Receive Date: 20090907
  Receipt Date: 20090824
  Transmission Date: 20100115
  Serious: Yes (Other)
  Sender: FDA-Public Use
  Company Number: US-PFIZER INC-2007086596

PATIENT
  Sex: Male
  Weight: 64.5 kg

DRUGS (12)
  1. CHANTIX [Suspect]
     Indication: SMOKING CESSATION THERAPY
     Dosage: 0.5 MG, 1X/DAY
     Dates: start: 20071012
  2. CHANTIX [Suspect]
     Dosage: 0.5 MG, 2X/DAY
  3. CLONAZEPAM [Concomitant]
     Indication: DEPRESSION
     Dosage: 1 MG, 4X/DAY
  4. TRAZODONE [Concomitant]
     Indication: DEPRESSION
     Dosage: 100 MG, 1X/DAY
  5. TRAZODONE [Concomitant]
     Indication: SLEEP DISORDER
  6. TRIAZOLAM [Concomitant]
     Indication: DEPRESSION
     Dosage: 100 MG, 1X/DAY WHEN NEEDED
  7. PREVACID [Concomitant]
     Indication: IRRITABLE BOWEL SYNDROME
     Dosage: 15 MG, 4X/DAY
  8. PREVACID [Concomitant]
     Indication: GASTROOESOPHAGEAL REFLUX DISEASE
  9. LOMOTIL [Concomitant]
     Indication: IRRITABLE BOWEL SYNDROME
  10. OXYCONTIN [Concomitant]
     Indication: SCIATICA
     Dosage: 10 MG, 2X/DAY
  11. OXYCODONE [Concomitant]
     Dosage: 5 MG, 4X/DAY
  12. LEVSINEX [Concomitant]
     Indication: IRRITABLE BOWEL SYNDROME

REACTIONS (4)
  - ABDOMINAL PAIN UPPER [None]
  - ABNORMAL DREAMS [None]
  - ROAD TRAFFIC ACCIDENT [None]
  - SURGERY [None]
